FAERS Safety Report 7327282-0 (Version None)
Quarter: 2011Q1

REPORT INFORMATION
  Report Type: 
  Country: None (occurrence: None)
  Receive Date: 20110302
  Receipt Date: 20110218
  Transmission Date: 20110831
  Serious: Yes (Other)
  Sender: FDA-Public Use
  Company Number: US-BAYER-2011-016078

PATIENT
  Age: 40 Year
  Sex: Male

DRUGS (1)
  1. ASPIRIN [Suspect]
     Indication: FLANK PAIN
     Dosage: UNK
     Route: 048

REACTIONS (2)
  - TINNITUS [None]
  - DEAFNESS TRANSITORY [None]
